FAERS Safety Report 14840002 (Version 1)
Quarter: 2018Q2

REPORT INFORMATION
  Report Type: Spontaneous
  Country: KR (occurrence: KR)
  Receive Date: 20180503
  Receipt Date: 20180503
  Transmission Date: 20180711
  Serious: Yes (Other)
  Sender: FDA-Public Use
  Company Number: KR-UNICHEM PHARMACEUTICALS (USA) INC-UCM201804-000113

PATIENT
  Age: 45 Year
  Sex: Female

DRUGS (3)
  1. FLUOXETINE [Suspect]
     Active Substance: FLUOXETINE HYDROCHLORIDE
     Indication: WEIGHT DECREASED
  2. MAGNESIUM HYDROXIDE. [Suspect]
     Active Substance: MAGNESIUM HYDROXIDE
     Indication: WEIGHT DECREASED
  3. HYDROCHLOROTHIAZIDE. [Suspect]
     Active Substance: HYDROCHLOROTHIAZIDE
     Indication: WEIGHT DECREASED

REACTIONS (3)
  - Myopia [Recovered/Resolved]
  - Product use in unapproved indication [Unknown]
  - Choroidal effusion [Recovered/Resolved]
